FAERS Safety Report 8823278 (Version 2)
Quarter: 2012Q4

REPORT INFORMATION
  Report Type: 
  Country: AU (occurrence: AU)
  Receive Date: 20121003
  Receipt Date: 20121019
  Transmission Date: 20130627
  Serious: Yes (Hospitalization)
  Sender: FDA-Public Use
  Company Number: AU-GLAXOSMITHKLINE-B0835029A

PATIENT
  Age: 46 Year
  Sex: Female

DRUGS (3)
  1. NEOTIGASON [Suspect]
     Indication: PSORIASIS
     Dosage: 10MG Per day
     Route: 048
     Dates: start: 20120920, end: 20120927
  2. KARVEA [Concomitant]
     Dosage: 225MG Per day
  3. CARTIA [Concomitant]

REACTIONS (9)
  - Eye haemorrhage [Unknown]
  - Retinal tear [Unknown]
  - Vision blurred [Unknown]
  - Pruritus [Unknown]
  - Abdominal distension [Unknown]
  - Gastrointestinal pain [Unknown]
  - Hot flush [Unknown]
  - Lip dry [Unknown]
  - Malaise [Unknown]
